FAERS Safety Report 4450805-6 (Version None)
Quarter: 2004Q3

REPORT INFORMATION
  Report Type: 
  Country: None (occurrence: None)
  Receive Date: 20040913
  Receipt Date: 20040519
  Transmission Date: 20050211
  Serious: No
  Sender: FDA-Public Use
  Company Number: 2004-BP-03982BP(0)

PATIENT
  Age: 78 Year
  Sex: Female
  Weight: 63.5 kg

DRUGS (2)
  1. SPIRIVA [Suspect]
     Indication: CHRONIC OBSTRUCTIVE AIRWAYS DISEASE
     Dosage: 18 MCG (18 MCG,1 CAPSULE OD), IH
     Dates: start: 20040513, end: 20040517
  2. ALBUTEROL INHALER (SALBUTAMOL) [Concomitant]

REACTIONS (1)
  - MOUTH ULCERATION [None]
